FAERS Safety Report 26005309 (Version 1)
Quarter: 2025Q4

REPORT INFORMATION
  Report Type: Spontaneous
  Country: RU (occurrence: RU)
  Receive Date: 20251106
  Receipt Date: 20251106
  Transmission Date: 20260118
  Serious: Yes (Other)
  Sender: ABBVIE
  Company Number: RU-ABBVIE-6529268

PATIENT
  Sex: Female

DRUGS (4)
  1. RINVOQ [Suspect]
     Active Substance: UPADACITINIB
     Indication: Product used for unknown indication
     Route: 048
     Dates: start: 2025
  2. ZINC [Concomitant]
     Active Substance: ZINC
     Indication: Product used for unknown indication
     Route: 065
     Dates: start: 2025
  3. VITAMIN D [Concomitant]
     Active Substance: VITAMIN D NOS
     Indication: Product used for unknown indication
     Route: 065
     Dates: start: 2025
  4. SELENIUM [Concomitant]
     Active Substance: SELENIUM
     Indication: Product used for unknown indication
     Route: 065
     Dates: start: 2025

REACTIONS (4)
  - Angina pectoris [Unknown]
  - Headache [Unknown]
  - Drug ineffective [Unknown]
  - Respiratory tract infection viral [Unknown]

NARRATIVE: CASE EVENT DATE: 20250101
